FAERS Safety Report 7933244-2 (Version None)
Quarter: 2011Q4

REPORT INFORMATION
  Report Type: 
  Country: None (occurrence: None)
  Receive Date: 20111122
  Receipt Date: 20111121
  Transmission Date: 20120403
  Serious: No
  Sender: FDA-Public Use
  Company Number: US-B.I. PHARMACEUTICALS,INC./RIDGEFIELD-2011-BP-26506BP

PATIENT
  Age: 72 Year
  Sex: Female

DRUGS (8)
  1. LASIX [Concomitant]
     Indication: OEDEMA
     Dosage: 40 MG
     Route: 048
  2. SPIRIVA [Suspect]
     Indication: CHRONIC OBSTRUCTIVE PULMONARY DISEASE
     Dosage: 18 MCG
     Route: 055
  3. GLYBURIDE [Concomitant]
     Indication: DIABETES MELLITUS
     Route: 048
  4. ADVAIR DISKUS 100/50 [Concomitant]
     Indication: CHRONIC OBSTRUCTIVE PULMONARY DISEASE
     Route: 055
  5. SOMA [Concomitant]
     Indication: PAIN
     Route: 048
  6. VALIUM [Concomitant]
     Indication: ANXIETY
     Dosage: 5 MG
     Route: 048
  7. OXYGEN [Concomitant]
     Indication: CHRONIC OBSTRUCTIVE PULMONARY DISEASE
     Route: 055
  8. LIPITOR [Concomitant]
     Indication: BLOOD CHOLESTEROL INCREASED
     Route: 048

REACTIONS (8)
  - DRUG INEFFECTIVE [None]
  - SPUTUM INCREASED [None]
  - CONSTIPATION [None]
  - COUGH [None]
  - CHEST DISCOMFORT [None]
  - DYSPEPSIA [None]
  - DRY MOUTH [None]
  - BRONCHOSPASM [None]
